FAERS Safety Report 4702969-4 (Version None)
Quarter: 2005Q2

REPORT INFORMATION
  Report Type: 
  Country: None (occurrence: None)
  Receive Date: 20050629
  Receipt Date: 20050617
  Transmission Date: 20051028
  Serious: Yes (Disabling)
  Sender: FDA-Public Use
  Company Number: GB-ROCHE-408183

PATIENT
  Age: 65 Year
  Sex: Male
  Weight: 76 kg

DRUGS (3)
  1. CAPECITABINE [Suspect]
     Indication: COLORECTAL CANCER
     Dosage: PATIENT'S TO RECEIVE A 12 WEEK CYCLE, CAPECITABINE GIVEN 5 DAYS PER WEEK (MONDAY TO FRIDAY)
     Route: 048
     Dates: start: 20050516
  2. OXALIPLATIN [Suspect]
     Indication: COLORECTAL CANCER
     Route: 042
     Dates: start: 20050519
  3. HALOPERIDOL [Suspect]
     Indication: DRUG USE FOR UNKNOWN INDICATION
     Route: 048
     Dates: start: 20050613, end: 20050616

REACTIONS (1)
  - HICCUPS [None]
